FAERS Safety Report 25208642 (Version 1)
Quarter: 2025Q2

REPORT INFORMATION
  Report Type: Spontaneous
  Country: US (occurrence: US)
  Receive Date: 20250417
  Receipt Date: 20250417
  Transmission Date: 20250717
  Serious: No
  Sender: LUPIN
  Company Number: US-LUPIN PHARMACEUTICALS INC.-2025-03187

PATIENT
  Age: 48 Year
  Weight: 77.098 kg

DRUGS (2)
  1. JENCYCLA [Suspect]
     Active Substance: NORETHINDRONE
     Indication: Menopause
     Route: 065
  2. JENCYCLA [Suspect]
     Active Substance: NORETHINDRONE
     Indication: Uterine leiomyoma

REACTIONS (3)
  - Haemorrhage [Unknown]
  - Product dose omission issue [Unknown]
  - Off label use [Unknown]
